FAERS Safety Report 7413587-1 (Version None)
Quarter: 2011Q2

REPORT INFORMATION
  Report Type: 
  Country: None (occurrence: None)
  Receive Date: 20110413
  Receipt Date: 20110329
  Transmission Date: 20111010
  Serious: Yes (Hospitalization)
  Sender: FDA-Public Use
  Company Number: GB-GENENTECH-316185

PATIENT

DRUGS (2)
  1. LUCENTIS [Suspect]
     Dosage: UNK
     Dates: start: 20100129
  2. LUCENTIS [Suspect]
     Indication: PRODUCT USED FOR UNKNOWN INDICATION
     Dosage: UNK
     Dates: start: 20091006

REACTIONS (1)
  - LOWER RESPIRATORY TRACT INFECTION [None]
